FAERS Safety Report 6406307-0 (Version None)
Quarter: 2009Q4

REPORT INFORMATION
  Report Type: 
  Country: None (occurrence: None)
  Receive Date: 20091019
  Receipt Date: 20091013
  Transmission Date: 20100525
  Serious: Yes (Death, Hospitalization)
  Sender: FDA-Public Use
  Company Number: PHHY2009BR44349

PATIENT
  Sex: Female

DRUGS (5)
  1. DIOVAN [Suspect]
     Indication: BLOOD PRESSURE
     Dosage: 80 MG
  2. AMLODIPINE [Concomitant]
  3. ALENDRONATE SODIUM [Concomitant]
  4. CALCIUM WITH VITAMIN D [Concomitant]
  5. DRUG THERAPY NOS [Concomitant]

REACTIONS (1)
  - THYROID CANCER [None]
